FAERS Safety Report 15179301 (Version 1)
Quarter: 2018Q3

REPORT INFORMATION
  Report Type: Spontaneous
  Country: US (occurrence: US)
  Receive Date: 20180723
  Receipt Date: 20180723
  Transmission Date: 20181010
  Serious: No
  Sender: FDA-Public Use
  Company Number: US-CIPLA LTD.-2018US16378

PATIENT

DRUGS (4)
  1. ZONISAMIDE. [Suspect]
     Active Substance: ZONISAMIDE
     Indication: SEIZURE
     Dosage: 100 MG, ONCE A DAY
     Route: 048
     Dates: start: 201802, end: 201803
  2. LEVOTHYROXINE. [Concomitant]
     Active Substance: LEVOTHYROXINE
     Indication: THYROXINE ABNORMAL
     Dosage: 25 MG, ONCE A DAY
     Route: 065
     Dates: start: 2011
  3. COD LIVER + FISH OIL [Concomitant]
     Indication: BLOOD CHOLESTEROL INCREASED
     Dosage: 1200 MG, ONCE A DAY
     Route: 065
     Dates: start: 2017
  4. BENAZEPRIL [Concomitant]
     Active Substance: BENAZEPRIL HYDROCHLORIDE
     Indication: HYPERTENSION
     Dosage: 20 MG, ONCE A DAY
     Route: 065
     Dates: start: 2012

REACTIONS (7)
  - Nervous system disorder [Recovered/Resolved]
  - Hyperhidrosis [Recovered/Resolved]
  - Thinking abnormal [Recovered/Resolved]
  - Decreased appetite [Recovered/Resolved]
  - Somnolence [Recovered/Resolved]
  - Amnesia [Recovering/Resolving]
  - Fatigue [Recovered/Resolved]

NARRATIVE: CASE EVENT DATE: 201803
